FAERS Safety Report 9387085 (Version 1)
Quarter: 2013Q3

REPORT INFORMATION
  Report Type: Spontaneous
  Country: ES (occurrence: ES)
  Receive Date: 20130708
  Receipt Date: 20130708
  Transmission Date: 20140515
  Serious: Yes (Other)
  Sender: FDA-Public Use
  Company Number: PHHY2013ES068771

PATIENT
  Age: 84 Year
  Sex: Female

DRUGS (4)
  1. MIRTAZAPINE [Suspect]
     Indication: INSOMNIA
  2. MIRTAZAPINE [Interacting]
     Indication: DEPRESSION
  3. ONDANSETRON [Interacting]
     Dosage: 8 MG, BID
  4. ONDANSETRON [Interacting]
     Dosage: 4 MG, UNK

REACTIONS (6)
  - Cerebellar haemorrhage [Unknown]
  - Vertigo [Unknown]
  - Diplopia [Unknown]
  - Vomiting [Recovered/Resolved]
  - Nausea [Unknown]
  - Drug interaction [Unknown]
